FAERS Safety Report 4842022-2 (Version None)
Quarter: 2005Q4

REPORT INFORMATION
  Report Type: 
  Country: None (occurrence: None)
  Receive Date: 20051130
  Receipt Date: 20051024
  Transmission Date: 20060501
  Serious: No
  Sender: FDA-Public Use
  Company Number: US-GLAXOSMITHKLINE-A0581201A

PATIENT

DRUGS (2)
  1. WELLBUTRIN XL [Suspect]
     Indication: DEPRESSION
     Dosage: 600MG PER DAY
     Route: 048
  2. STIMULANT [Concomitant]

REACTIONS (1)
  - INCORRECT DOSE ADMINISTERED [None]
